FAERS Safety Report 5702935-6 (Version None)
Quarter: 2008Q2

REPORT INFORMATION
  Report Type: 
  Country: None (occurrence: None)
  Receive Date: 20080408
  Receipt Date: 20080327
  Transmission Date: 20081010
  Serious: Yes (Other)
  Sender: FDA-Public Use
  Company Number: 2008BI008340

PATIENT
  Sex: Female

DRUGS (1)
  1. AVONEX [Suspect]
     Indication: MULTIPLE SCLEROSIS
     Dosage: ; IM
     Route: 030
     Dates: start: 19981201

REACTIONS (4)
  - FALL [None]
  - HYPOAESTHESIA [None]
  - INTESTINAL RESECTION [None]
  - MULTIPLE SCLEROSIS [None]
